FAERS Safety Report 5470998-1 (Version None)
Quarter: 2007Q3

REPORT INFORMATION
  Report Type: 
  Country: None (occurrence: None)
  Receive Date: 20070928
  Receipt Date: 20070926
  Transmission Date: 20080115
  Serious: Yes (Life-Threatening, Hospitalization, Other)
  Sender: FDA-Public Use
  Company Number: A0684444A

PATIENT
  Age: 6 Year
  Sex: Female
  Weight: 21 kg

DRUGS (2)
  1. CLAVULIN [Suspect]
     Indication: SINUSITIS
     Route: 048
     Dates: start: 20070913, end: 20070917
  2. FLUMUCIL [Concomitant]
     Dates: start: 20070914, end: 20070919

REACTIONS (5)
  - ANOREXIA [None]
  - DIARRHOEA [None]
  - HEREDITARY SPHEROCYTOSIS [None]
  - NAUSEA [None]
  - SPLEEN DISORDER [None]
